FAERS Safety Report 7507601-2 (Version None)
Quarter: 2011Q2

REPORT INFORMATION
  Report Type: 
  Country: None (occurrence: None)
  Receive Date: 20110526
  Receipt Date: 20110524
  Transmission Date: 20111010
  Serious: Yes (Hospitalization, Other)
  Sender: FDA-Public Use
  Company Number: US-AMGEN-USASP2011023355

PATIENT
  Age: 47 Year
  Sex: Female
  Weight: 97.052 kg

DRUGS (3)
  1. IMMUNOGLOBULINS [Concomitant]
     Dosage: 50 G, UNK
     Route: 042
     Dates: start: 20100910, end: 20100910
  2. NPLATE [Suspect]
     Indication: IDIOPATHIC THROMBOCYTOPENIC PURPURA
     Dosage: 382 A?G, QWK
     Route: 058
     Dates: start: 20100415, end: 20101015
  3. PREDNISONE [Concomitant]

REACTIONS (2)
  - IDIOPATHIC THROMBOCYTOPENIC PURPURA [None]
  - PLATELET COUNT DECREASED [None]
